FAERS Safety Report 21446079 (Version 1)
Quarter: 2022Q4

REPORT INFORMATION
  Report Type: Spontaneous
  Country: RU (occurrence: RU)
  Receive Date: 20221012
  Receipt Date: 20221012
  Transmission Date: 20230113
  Serious: Yes (Hospitalization)
  Sender: FDA-Public Use
  Company Number: RU-ALXN-A202212358

PATIENT
  Age: 7 Year
  Sex: Female
  Weight: 40 kg

DRUGS (1)
  1. STRENSIQ [Suspect]
     Active Substance: ASFOTASE ALFA
     Indication: Hypophosphatasia
     Dosage: 80 MG, TIW
     Route: 058
     Dates: start: 20220908

REACTIONS (1)
  - Hospitalisation [Unknown]
